FAERS Safety Report 5168968-6 (Version None)
Quarter: 2006Q4

REPORT INFORMATION
  Report Type: 
  Country: None (occurrence: None)
  Receive Date: 20061211
  Receipt Date: 20061207
  Transmission Date: 20070319
  Serious: Yes (Hospitalization)
  Sender: FDA-Public Use
  Company Number: 6691

PATIENT
  Age: 66 Year
  Sex: Female

DRUGS (11)
  1. TOPOTECAN [Suspect]
     Indication: SMALL CELL LUNG CANCER STAGE UNSPECIFIED
     Dosage: 1.48MG PER DAY
     Route: 042
     Dates: start: 20061023, end: 20061027
  2. CLARITHROMYCIN [Concomitant]
     Indication: BRONCHITIS CHRONIC
     Dosage: 200MG PER DAY
     Route: 048
     Dates: start: 20060510
  3. GLYBURIDE [Concomitant]
     Indication: DIABETES MELLITUS
     Dosage: 1.25MG PER DAY
     Route: 048
     Dates: start: 20060525
  4. THEOPHYLLINE [Concomitant]
     Indication: BRONCHITIS CHRONIC
     Dosage: 400MG PER DAY
     Route: 048
     Dates: start: 20060510
  5. FUDOSTEINE [Concomitant]
     Indication: BRONCHITIS CHRONIC
     Dosage: 400MG PER DAY
     Route: 048
     Dates: start: 20060524
  6. LOXOPROFEN SODIUM [Concomitant]
     Indication: PAIN
     Dosage: 180MG PER DAY
     Route: 048
     Dates: start: 20060520
  7. REBAMIPIDE [Concomitant]
     Indication: GASTRITIS
     Dosage: 300MG PER DAY
     Route: 048
     Dates: start: 20060520
  8. MAGNESIUM OXIDE [Concomitant]
     Indication: CONSTIPATION
     Dosage: 3G PER DAY
     Route: 048
     Dates: start: 20060524
  9. CONCENTRATED GLYCERIN + FRUCTOSE [Concomitant]
     Indication: INTRACRANIAL PRESSURE INCREASED
     Dosage: 600ML PER DAY
     Dates: start: 20061005, end: 20061024
  10. DEXAMETHASONE SODIUM PHOSPHATE [Concomitant]
     Indication: INTRACRANIAL PRESSURE INCREASED
     Dosage: 6MG PER DAY
     Route: 048
     Dates: start: 20061005, end: 20061024
  11. GRANISETRON  HCL [Concomitant]
     Indication: PROPHYLAXIS
     Dosage: 3MG PER DAY
     Route: 048
     Dates: start: 20061023, end: 20061027

REACTIONS (4)
  - C-REACTIVE PROTEIN INCREASED [None]
  - NEUTROPENIA [None]
  - PNEUMONIA [None]
  - THROMBOCYTOPENIA [None]
